FAERS Safety Report 22841303 (Version 4)
Quarter: 2024Q1

REPORT INFORMATION
  Report Type: Report from Study
  Country: KR (occurrence: KR)
  Receive Date: 20230820
  Receipt Date: 20240227
  Transmission Date: 20240409
  Serious: Yes (Other)
  Sender: FDA-Public Use
  Company Number: KR-002147023-NVSC2023KR164518

PATIENT
  Age: 75 Year
  Sex: Female
  Weight: 30.5 kg

DRUGS (58)
  1. KISQALI [Suspect]
     Active Substance: RIBOCICLIB
     Indication: Hormone receptor positive HER2 negative breast cancer
     Dosage: 400 MG, QD
     Route: 048
     Dates: start: 20230613, end: 20230703
  2. KISQALI [Suspect]
     Active Substance: RIBOCICLIB
     Dosage: 400 MG, QD
     Route: 048
     Dates: start: 20230710, end: 20230717
  3. MAGNESIUM HYDROXIDE [Concomitant]
     Active Substance: MAGNESIUM HYDROXIDE
     Indication: Prophylaxis
     Dosage: 4 DOSAGE FORM, QD
     Route: 048
     Dates: start: 20230606, end: 20230626
  4. XGEVA [Concomitant]
     Active Substance: DENOSUMAB
     Indication: Prophylaxis
     Dosage: 120 MG, QD
     Route: 058
     Dates: start: 20230613, end: 20230613
  5. XGEVA [Concomitant]
     Active Substance: DENOSUMAB
     Dosage: 120 MG, QD
     Route: 058
     Dates: start: 20230710, end: 20230710
  6. OXYCODONE HYDROCHLORIDE [Concomitant]
     Active Substance: OXYCODONE HYDROCHLORIDE
     Indication: Prophylaxis
     Dosage: 3 DOSAGE FORM, QD
     Route: 048
     Dates: start: 20230613, end: 20230626
  7. OXYCODONE HYDROCHLORIDE [Concomitant]
     Active Substance: OXYCODONE HYDROCHLORIDE
     Indication: Abdominal pain
     Dosage: 3 DOSAGE FORM, QD
     Route: 048
     Dates: start: 20230710, end: 20230717
  8. OXYCODONE HYDROCHLORIDE [Concomitant]
     Active Substance: OXYCODONE HYDROCHLORIDE
     Dosage: 3 DOSAGE FORM, QD
     Route: 048
     Dates: start: 20230719, end: 20230719
  9. OXYCODONE HYDROCHLORIDE [Concomitant]
     Active Substance: OXYCODONE HYDROCHLORIDE
     Dosage: 3 DOSAGE FORM, QD
     Route: 048
     Dates: start: 20230721, end: 20230723
  10. OXYCODONE HYDROCHLORIDE [Concomitant]
     Active Substance: OXYCODONE HYDROCHLORIDE
     Dosage: 3 DOSAGE FORM, QD
     Route: 048
     Dates: start: 20230725, end: 20230728
  11. OXYCODONE HYDROCHLORIDE [Concomitant]
     Active Substance: OXYCODONE HYDROCHLORIDE
     Dosage: 3 DOSAGE FORM, QD
     Route: 048
     Dates: start: 20230801, end: 20230801
  12. OXYCODONE HYDROCHLORIDE [Concomitant]
     Active Substance: OXYCODONE HYDROCHLORIDE
     Dosage: 3 DOSAGE FORM, QD
     Route: 048
     Dates: start: 20230803, end: 20230803
  13. ACECLOFENAC [Concomitant]
     Active Substance: ACECLOFENAC
     Indication: Prophylaxis
     Dosage: 2 DOSAGE FORM, QD
     Route: 048
     Dates: start: 20230601, end: 20230626
  14. NALOXONE HYDROCHLORIDE\OXYCODONE HYDROCHLORIDE [Concomitant]
     Active Substance: NALOXONE HYDROCHLORIDE\OXYCODONE HYDROCHLORIDE
     Indication: Prophylaxis
     Dosage: 2 DOSAGE FORM, QD (5/2.5MG)
     Route: 048
     Dates: start: 20230602, end: 20230709
  15. NALOXONE HYDROCHLORIDE\OXYCODONE HYDROCHLORIDE [Concomitant]
     Active Substance: NALOXONE HYDROCHLORIDE\OXYCODONE HYDROCHLORIDE
     Indication: Abdominal pain
     Dosage: 2 DOSAGE FORM, QD (10/5MG)
     Route: 048
     Dates: start: 20230714, end: 20230717
  16. NALOXONE HYDROCHLORIDE\OXYCODONE HYDROCHLORIDE [Concomitant]
     Active Substance: NALOXONE HYDROCHLORIDE\OXYCODONE HYDROCHLORIDE
     Dosage: 2 DOSAGE FORM, QD (10/5MG)
     Route: 048
     Dates: start: 20230720, end: 20230721
  17. NALOXONE HYDROCHLORIDE\OXYCODONE HYDROCHLORIDE [Concomitant]
     Active Substance: NALOXONE HYDROCHLORIDE\OXYCODONE HYDROCHLORIDE
     Dosage: 2 DOSAGE FORM, QD (10/5MG)
     Route: 048
     Dates: start: 20230722, end: 20230803
  18. FEMARA [Concomitant]
     Active Substance: LETROZOLE
     Indication: Breast cancer
     Dosage: 2.5 MG, QD
     Route: 048
     Dates: start: 20230613
  19. ATACAND [Concomitant]
     Active Substance: CANDESARTAN CILEXETIL
     Indication: Hypertension
     Dosage: 1 DOSAGE FORM, QD
     Route: 048
     Dates: start: 20230612, end: 20230626
  20. MEGACE F [Concomitant]
     Indication: Prophylaxis
     Dosage: 1 DOSAGE FORM, QD (SUSPENSION)
     Route: 048
     Dates: start: 20230613, end: 20230626
  21. NORZYME [Concomitant]
     Indication: Prophylaxis
     Dosage: 3 DOSAGE FORM, QD
     Route: 048
     Dates: start: 20230613, end: 20230626
  22. ZYPREXA [Concomitant]
     Active Substance: OLANZAPINE
     Indication: Prophylaxis
     Dosage: 1 DOSAGE FORM, QD
     Route: 048
     Dates: start: 20230710, end: 20230714
  23. FERINJECT [Concomitant]
     Active Substance: FERRIC CARBOXYMALTOSE
     Indication: Anaemia
     Dosage: 1000 MG, QD
     Route: 042
     Dates: start: 20230710, end: 20230710
  24. PENIRAMIN [Concomitant]
     Indication: Prophylaxis
     Dosage: 4 MG, QD
     Route: 042
     Dates: start: 20230710, end: 20230710
  25. PENIRAMIN [Concomitant]
     Dosage: 4 MG, QD
     Route: 042
     Dates: start: 20230718, end: 20230718
  26. PENIRAMIN [Concomitant]
     Dosage: 4 MG, QD
     Route: 042
     Dates: start: 20230721, end: 20230721
  27. PENIRAMIN [Concomitant]
     Dosage: 4 MG, QD
     Route: 042
     Dates: start: 20230725, end: 20230726
  28. PENIRAMIN [Concomitant]
     Dosage: 4 MG, QD
     Route: 042
     Dates: start: 20230728, end: 20230728
  29. AMLODIPINE CAMSYLATE [Concomitant]
     Active Substance: AMLODIPINE CAMSYLATE
     Indication: Hypertension
     Dosage: 1 DOSAGE FORM, QD
     Route: 048
     Dates: start: 20230717, end: 20230719
  30. AMLODIPINE CAMSYLATE [Concomitant]
     Active Substance: AMLODIPINE CAMSYLATE
     Dosage: 1 DOSAGE FORM, QD
     Route: 048
     Dates: start: 20230724, end: 20230803
  31. MORPHINE HYDROCHLORIDE [Concomitant]
     Active Substance: MORPHINE HYDROCHLORIDE
     Indication: Abdominal pain
     Dosage: 3 MG, QD
     Route: 042
     Dates: start: 20230724, end: 20230724
  32. MORPHINE HYDROCHLORIDE [Concomitant]
     Active Substance: MORPHINE HYDROCHLORIDE
     Dosage: 3 MG, QD
     Route: 042
     Dates: start: 20230728, end: 20230728
  33. FEBUXOSTAT [Concomitant]
     Active Substance: FEBUXOSTAT
     Indication: Prophylaxis
     Dosage: 1 DOSAGE FORM, QD
     Route: 048
     Dates: start: 20230717, end: 20230803
  34. MORPHINE SULFATE [Concomitant]
     Active Substance: MORPHINE SULFATE
     Indication: Abdominal pain
     Dosage: 1 UNK (AMP), QD
     Route: 042
     Dates: start: 20230717, end: 20230717
  35. MORPHINE SULFATE [Concomitant]
     Active Substance: MORPHINE SULFATE
     Dosage: 1 UNK (AMP), QD
     Route: 042
     Dates: start: 20230719, end: 20230719
  36. REBAMIPIDE [Concomitant]
     Active Substance: REBAMIPIDE
     Indication: Prophylaxis
     Dosage: 2 DOSAGE FORM, QD
     Route: 048
     Dates: start: 20230726, end: 20230730
  37. NEXIUM [Concomitant]
     Active Substance: ESOMEPRAZOLE MAGNESIUM
     Indication: Prophylaxis
     Dosage: 160 MG, QD
     Route: 042
     Dates: start: 20230724, end: 20230726
  38. NEXIUM [Concomitant]
     Active Substance: ESOMEPRAZOLE MAGNESIUM
     Dosage: 40 MG, QD
     Route: 042
     Dates: start: 20230727, end: 20230803
  39. PHOSTEN [Concomitant]
     Indication: Prophylaxis
     Dosage: 20 ML, QD
     Route: 042
     Dates: start: 20230717, end: 20230721
  40. PHOSTEN [Concomitant]
     Dosage: 20 ML, QD
     Route: 042
     Dates: start: 20230723, end: 20230723
  41. PHOSTEN [Concomitant]
     Dosage: 20 ML, QD
     Route: 042
     Dates: start: 20230727, end: 20230729
  42. PHOSTEN [Concomitant]
     Dosage: 20 ML, QD
     Route: 042
     Dates: start: 20230731, end: 20230731
  43. PHOSTEN [Concomitant]
     Dosage: 20 ML, QD
     Route: 042
     Dates: start: 20230803, end: 20230803
  44. VITAMINS [Concomitant]
     Active Substance: VITAMINS
     Indication: Prophylaxis
     Dosage: 1 UNK (VL), QD
     Route: 017
     Dates: start: 20230718, end: 20230803
  45. MOSAPRIDE CITRATE [Concomitant]
     Active Substance: MOSAPRIDE CITRATE
     Indication: Prophylaxis
     Dosage: 1 DOSAGE FORM, QD
     Route: 048
     Dates: start: 20230717, end: 20230717
  46. MOSAPRIDE CITRATE [Concomitant]
     Active Substance: MOSAPRIDE CITRATE
     Dosage: 3 DOSAGE FORM, QD
     Route: 048
     Dates: start: 20230718, end: 20230803
  47. MEPERIDINE [Concomitant]
     Active Substance: MEPERIDINE
     Indication: Abdominal pain
     Dosage: 25 MG, QD
     Route: 042
     Dates: start: 20230725, end: 20230725
  48. LASIX [Concomitant]
     Active Substance: FUROSEMIDE
     Indication: Prophylaxis
     Dosage: 20 MG, QD
     Route: 042
     Dates: start: 20230722, end: 20230722
  49. LIDOCAINE HYDROCHL [Concomitant]
     Indication: Prophylaxis
     Dosage: 20 ML, QD
     Route: 042
     Dates: start: 20230725, end: 20230725
  50. LOPERAMIDE [Concomitant]
     Active Substance: LOPERAMIDE
     Indication: Prophylaxis
     Dosage: 16 MG, QD
     Route: 048
     Dates: start: 20230613, end: 20230626
  51. TRESTAN [Concomitant]
     Indication: Prophylaxis
     Dosage: 2 DOSAGE FORM, QD
     Route: 048
     Dates: start: 20230718, end: 20230723
  52. TRESTAN [Concomitant]
     Dosage: 2 DOSAGE FORM, QD
     Route: 048
     Dates: start: 20230725, end: 20230726
  53. TRESTAN [Concomitant]
     Dosage: 2 DOSAGE FORM, QD
     Route: 048
     Dates: start: 20230728, end: 20230729
  54. CEFTRIAXONE SODIUM [Concomitant]
     Active Substance: CEFTRIAXONE SODIUM
     Indication: Prophylaxis
     Dosage: 2 DOSAGE FORM, QD
     Route: 048
     Dates: start: 20230718, end: 20230723
  55. CEFTRIAXONE SODIUM [Concomitant]
     Active Substance: CEFTRIAXONE SODIUM
     Dosage: 2 DOSAGE FORM, QD
     Route: 048
     Dates: start: 20230725, end: 20230726
  56. CEFTRIAXONE SODIUM [Concomitant]
     Active Substance: CEFTRIAXONE SODIUM
     Dosage: 2 DOSAGE FORM, QD
     Route: 048
     Dates: start: 20230728, end: 20230729
  57. ACETAMINOPHEN\TRAMADOL HYDROCHLORIDE [Concomitant]
     Active Substance: ACETAMINOPHEN\TRAMADOL HYDROCHLORIDE
     Indication: Abdominal pain
     Dosage: 2 DOSAGE FORM, QD
     Route: 048
     Dates: start: 20230719, end: 20230803
  58. DICAMAX [Concomitant]
     Indication: Prophylaxis
     Dosage: 1 DOSAGE FORM, QD
     Route: 048
     Dates: start: 20230718, end: 20230803

REACTIONS (3)
  - Clostridium difficile infection [Not Recovered/Not Resolved]
  - Haematochezia [Not Recovered/Not Resolved]
  - Nausea [Not Recovered/Not Resolved]

NARRATIVE: CASE EVENT DATE: 20230710
